FAERS Safety Report 16766527 (Version 1)
Quarter: 2019Q4

REPORT INFORMATION
  Report Type: Spontaneous
  Country: US (occurrence: US)
  Receive Date: 20190831
  Receipt Date: 20190831
  Transmission Date: 20200122
  Serious: Yes (Disabling)
  Sender: FDA-Public Use
  Company Number: None

PATIENT
  Age: 29 Year
  Sex: Female

DRUGS (1)
  1. SUBOXONE [Suspect]
     Active Substance: BUPRENORPHINE HYDROCHLORIDE\NALOXONE HYDROCHLORIDE
     Indication: DEPENDENCE
     Route: 060
     Dates: start: 20190401, end: 20190726

REACTIONS (10)
  - Condition aggravated [None]
  - Screaming [None]
  - Aggression [None]
  - Amnesia [None]
  - General physical health deterioration [None]
  - Impatience [None]
  - Anger [None]
  - Theft [None]
  - Loss of employment [None]
  - Bipolar I disorder [None]

NARRATIVE: CASE EVENT DATE: 20190705
